FAERS Safety Report 16529359 (Version 1)
Quarter: 2019Q3

REPORT INFORMATION
  Report Type: Spontaneous
  Country: US (occurrence: US)
  Receive Date: 20190704
  Receipt Date: 20190704
  Transmission Date: 20191004
  Serious: No
  Sender: FDA-Public Use
  Company Number: US-GW PHARMA-201906USGW2089

PATIENT

DRUGS (5)
  1. EPIDIOLEX [Suspect]
     Active Substance: CANNABIDIOL
     Dosage: 40 MILLIGRAM, TID
     Route: 048
     Dates: start: 2019, end: 2019
  2. CLOBAZAM. [Concomitant]
     Active Substance: CLOBAZAM
     Indication: PRODUCT USED FOR UNKNOWN INDICATION
     Dosage: UNK
     Route: 065
  3. KEPPRA [Concomitant]
     Active Substance: LEVETIRACETAM
     Indication: PRODUCT USED FOR UNKNOWN INDICATION
     Dosage: UNK
     Route: 065
  4. EPIDIOLEX [Suspect]
     Active Substance: CANNABIDIOL
     Dosage: 40 MILLIGRAM, TID
     Dates: start: 2019
  5. EPIDIOLEX [Suspect]
     Active Substance: CANNABIDIOL
     Indication: LENNOX-GASTAUT SYNDROME
     Dosage: 20 MILLIGRAM, BID
     Route: 048
     Dates: start: 201904, end: 2019

REACTIONS (4)
  - Sedation [Unknown]
  - Seizure [Unknown]
  - Intentional product use issue [Unknown]
  - Eye movement disorder [Unknown]

NARRATIVE: CASE EVENT DATE: 2019
